FAERS Safety Report 8037442-1 (Version None)
Quarter: 2012Q1

REPORT INFORMATION
  Report Type: 
  Country: None (occurrence: None)
  Receive Date: 20120111
  Receipt Date: 20120109
  Transmission Date: 20120608
  Serious: No
  Sender: FDA-Public Use
  Company Number: US-PFIZER INC-2012006518

PATIENT
  Sex: Female

DRUGS (1)
  1. ALPRAZOLAM [Suspect]
     Dosage: UNK
     Dates: start: 20000101

REACTIONS (3)
  - MALAISE [None]
  - WITHDRAWAL SYNDROME [None]
  - DRUG INEFFECTIVE [None]
